FAERS Safety Report 8462173-3 (Version None)
Quarter: 2012Q2

REPORT INFORMATION
  Report Type: 
  Country: None (occurrence: None)
  Receive Date: 20120618
  Receipt Date: 20120606
  Transmission Date: 20120825
  Serious: Yes (Hospitalization, Other)
  Sender: FDA-Public Use
  Company Number: CA-006682

PATIENT
  Age: 71 Year
  Sex: Male

DRUGS (1)
  1. FIRMAGON [Suspect]
     Indication: PROSTATE CANCER
     Dosage: (80 MG 1X/MONTH SUBCUTANEOUS)
     Route: 058

REACTIONS (3)
  - HEADACHE [None]
  - PNEUMONIA [None]
  - DIZZINESS [None]
